FAERS Safety Report 17201004 (Version 1)
Quarter: 2019Q4

REPORT INFORMATION
  Report Type: Spontaneous
  Country: FR (occurrence: FR)
  Receive Date: 20191226
  Receipt Date: 20191226
  Transmission Date: 20200122
  Serious: Yes (Other)
  Sender: FDA-Public Use
  Company Number: FR-TEVA-2019-FR-1157255

PATIENT
  Age: 58 Year
  Sex: Female

DRUGS (1)
  1. CHLORHYDRATE DE DULOXETINE [Suspect]
     Active Substance: DULOXETINE HYDROCHLORIDE
     Indication: DEPRESSION
     Dosage: 30 MG
     Route: 048
     Dates: start: 201906, end: 201906

REACTIONS (3)
  - Tremor [Recovered/Resolved]
  - Choking [Recovered/Resolved]
  - Hyperhidrosis [Recovered/Resolved]

NARRATIVE: CASE EVENT DATE: 201906
